FAERS Safety Report 4683578-2 (Version None)
Quarter: 2005Q2

REPORT INFORMATION
  Report Type: 
  Country: None (occurrence: None)
  Receive Date: 20050603
  Receipt Date: 20050603
  Transmission Date: 20051028
  Serious: Yes (Other)
  Sender: FDA-Public Use
  Company Number: None

PATIENT
  Age: 47 Year
  Sex: Male
  Weight: 83.9154 kg

DRUGS (3)
  1. LAMICTAL [Suspect]
     Indication: BIPOLAR DISORDER
     Dosage: 50 MG PO QHS
     Route: 048
     Dates: start: 20040328, end: 20050408
  2. WELLBUTRIN SR [Concomitant]
  3. REMERON [Concomitant]

REACTIONS (1)
  - LYMPHADENOPATHY [None]
